FAERS Safety Report 24273266 (Version 2)
Quarter: 2024Q3

REPORT INFORMATION
  Report Type: Spontaneous
  Country: IN (occurrence: IN)
  Receive Date: 20240902
  Receipt Date: 20240910
  Transmission Date: 20241017
  Serious: Yes (Life-Threatening, Other)
  Sender: MACLEODS
  Company Number: IN-MLMSERVICE-20240814-PI162055-00105-1

PATIENT

DRUGS (1)
  1. CLOBETASOL [Suspect]
     Active Substance: CLOBETASOL
     Indication: Psoriasis
     Dosage: CLOBETA-GM(BORAX,CHLOROCRESOL,CLOBETASOL PROPIONATE,MICONAZOLE NITRATE,NEOMYCIN SULFATE,ZINC OXIDE)
     Route: 061
     Dates: start: 2017

REACTIONS (7)
  - Kyphosis [Recovering/Resolving]
  - Osteoporotic fracture [Recovering/Resolving]
  - Spinal compression fracture [Recovering/Resolving]
  - Spinal compression fracture [Recovering/Resolving]
  - Pelvic fracture [Recovering/Resolving]
  - Body height decreased [Recovering/Resolving]
  - Cushing^s syndrome [Recovering/Resolving]

NARRATIVE: CASE EVENT DATE: 20190101
